FAERS Safety Report 21936675 (Version 1)
Quarter: 2023Q1

REPORT INFORMATION
  Report Type: Spontaneous
  Country: US (occurrence: US)
  Receive Date: 20230201
  Receipt Date: 20230201
  Transmission Date: 20230417
  Serious: Yes (Death, Hospitalization, Other)
  Sender: FDA-Public Use
  Company Number: US-AMGEN-USASP2023014400

PATIENT
  Age: 18 Year
  Sex: Male

DRUGS (4)
  1. RITUXIMAB [Suspect]
     Active Substance: RITUXIMAB
     Indication: Transplant rejection
     Dosage: UNK
     Route: 065
  2. RITUXIMAB [Suspect]
     Active Substance: RITUXIMAB
     Indication: Off label use
  3. MEPOLIZUMAB [Concomitant]
     Active Substance: MEPOLIZUMAB
     Indication: Transplant rejection
     Dosage: UNK
     Route: 065
  4. DARATUMUMAB [Concomitant]
     Active Substance: DARATUMUMAB
     Indication: Transplant rejection
     Dosage: UNK
     Route: 065

REACTIONS (10)
  - Acute pulmonary oedema [Fatal]
  - Multiple organ dysfunction syndrome [Fatal]
  - Shock [Unknown]
  - Disseminated intravascular coagulation [Unknown]
  - Encephalopathy [Unknown]
  - General physical health deterioration [Unknown]
  - Respiratory failure [Unknown]
  - Acute kidney injury [Unknown]
  - Hypertension [Unknown]
  - Off label use [Unknown]
